FAERS Safety Report 6445178-3 (Version None)
Quarter: 2009Q4

REPORT INFORMATION
  Report Type: 
  Country: None (occurrence: None)
  Receive Date: 20091117
  Receipt Date: 20091117
  Transmission Date: 20100525
  Serious: Yes (Other)
  Sender: FDA-Public Use
  Company Number: None

PATIENT
  Age: 78 Year
  Sex: Female
  Weight: 83.4619 kg

DRUGS (12)
  1. ZETIA [Suspect]
     Indication: BLOOD CHOLESTEROL INCREASED
     Dosage: 10 MGM DAILY PO
     Route: 048
     Dates: start: 20030914, end: 20090915
  2. GLIMEPIRIDE [Concomitant]
  3. DILTIAZEM [Concomitant]
  4. METFORMIN HCL [Concomitant]
  5. METOLAZONE [Concomitant]
  6. DIOVAN [Concomitant]
  7. ACTOS [Concomitant]
  8. ALENDRONATE SODIUM [Concomitant]
  9. METOPEOLOL TARTRATE [Concomitant]
  10. ENTERIC ASA [Concomitant]
  11. FLAXSEED OIL [Concomitant]
  12. XALATAN [Concomitant]

REACTIONS (3)
  - COORDINATION ABNORMAL [None]
  - GAIT DISTURBANCE [None]
  - MUSCULAR WEAKNESS [None]
